FAERS Safety Report 6978461-3 (Version None)
Quarter: 2010Q3

REPORT INFORMATION
  Report Type: 
  Country: None (occurrence: None)
  Receive Date: 20100913
  Receipt Date: 20100901
  Transmission Date: 20110219
  Serious: Yes (Other)
  Sender: FDA-Public Use
  Company Number: JP-NAPPMUNDI-MAG-2010-0001311

PATIENT
  Age: 40 Year
  Sex: Female

DRUGS (9)
  1. THEOPHYLLINE [Suspect]
     Indication: PRODUCT USED FOR UNKNOWN INDICATION
     Dosage: UNK
     Route: 048
     Dates: start: 20100401
  2. CELESTAMINE TAB [Concomitant]
     Route: 065
  3. SINGULAIR [Concomitant]
     Dosage: UNK
     Route: 048
     Dates: start: 20100401
  4. SULTANOL [Concomitant]
     Dosage: UNK
     Route: 055
     Dates: start: 20100401
  5. ADOAIR [Concomitant]
     Dosage: UNK
     Route: 055
     Dates: start: 20100401
  6. GASTER                             /00706001/ [Concomitant]
     Dosage: UNK
     Route: 048
  7. MUCODYNE [Concomitant]
     Route: 048
  8. DASEN [Concomitant]
     Route: 048
  9. TRANEXAMIC ACID [Concomitant]
     Route: 048

REACTIONS (1)
  - ABORTION SPONTANEOUS [None]
